FAERS Safety Report 5071805-1 (Version None)
Quarter: 2006Q3

REPORT INFORMATION
  Report Type: 
  Country: None (occurrence: None)
  Receive Date: 20060801
  Receipt Date: 20060726
  Transmission Date: 20061208
  Serious: Yes (Other)
  Sender: FDA-Public Use
  Company Number: HQWYE706510JUL06

PATIENT
  Age: 79 Year
  Sex: Female

DRUGS (10)
  1. CORDAREX (AMIODARONE, INJECTION) [Suspect]
     Indication: VENTRICULAR FIBRILLATION
     Dosage: 1.2 G 1X PER 1 DAY INTRAVENOUS 2 AMPULES - SEE IMAGES
     Route: 042
     Dates: start: 20060628, end: 20060628
  2. CORDAREX (AMIODARONE, INJECTION) [Suspect]
     Indication: VENTRICULAR FIBRILLATION
     Dosage: 1.2 G 1X PER 1 DAY INTRAVENOUS 2 AMPULES - SEE IMAGES
     Route: 042
     Dates: start: 20060630, end: 20060702
  3. LASIX [Concomitant]
  4. ENOXAPARIN SODIUM [Concomitant]
  5. PIPERACILLIN [Concomitant]
  6. COMBACTAM (SULBACTAM SODIUM) [Concomitant]
  7. DOBUTAMINE (DOBUTAMINE) [Concomitant]
  8. NOREPINEPHRINE BITARTRATE [Concomitant]
  9. SUFENTA [Concomitant]
  10. DORMICUM ^ROCHE^ (MIDAZOLAM MALEATE) [Concomitant]

REACTIONS (3)
  - ALANINE AMINOTRANSFERASE INCREASED [None]
  - ASPARTATE AMINOTRANSFERASE INCREASED [None]
  - HEPATOTOXICITY [None]
